FAERS Safety Report 23178928 (Version 14)
Quarter: 2024Q1

REPORT INFORMATION
  Report Type: Spontaneous
  Country: IN (occurrence: IN)
  Receive Date: 20231113
  Receipt Date: 20240223
  Transmission Date: 20240409
  Serious: Yes (Death, Hospitalization, Other)
  Sender: FDA-Public Use
  Company Number: IN-PFIZER INC-PV202300133498

PATIENT
  Age: 61 Year
  Sex: Female
  Weight: 50 kg

DRUGS (13)
  1. LORLATINIB [Suspect]
     Active Substance: LORLATINIB
     Indication: Osteosarcoma metastatic
     Dosage: 100 MG, 1X/DAY
     Route: 048
     Dates: start: 20230727
  2. LORLATINIB [Suspect]
     Active Substance: LORLATINIB
     Dosage: UNK, ALTERNATE DAY
     Route: 048
  3. LORLATINIB [Suspect]
     Active Substance: LORLATINIB
     Dosage: 100 MG, DAILY
     Route: 048
     Dates: end: 20231229
  4. GRANISET [Concomitant]
     Dosage: 3 MG
  5. FEBRINIL [Concomitant]
     Dosage: UNK
  6. RANITIDINE HYDROCHLORIDE [Concomitant]
     Active Substance: RANITIDINE HYDROCHLORIDE
     Dosage: 50 MG
  7. SODIUM CHLORIDE [Concomitant]
     Active Substance: SODIUM CHLORIDE
     Dosage: 100 ML OVER 15 MINUTES
     Route: 042
  8. SODIUM CHLORIDE [Concomitant]
     Active Substance: SODIUM CHLORIDE
     Dosage: 500 MG
     Route: 042
  9. SODIUM CHLORIDE [Concomitant]
     Active Substance: SODIUM CHLORIDE
     Dosage: 100 ML OVER 30 MINUTES
     Route: 042
  10. SODIUM CHLORIDE [Concomitant]
     Active Substance: SODIUM CHLORIDE
     Dosage: 100 ML OVER 30 MINUTES
     Route: 042
  11. ZOLEDRONIC ACID [Concomitant]
     Active Substance: ZOLEDRONIC ACID
     Dosage: 4 MG
  12. PACLITAXEL [Concomitant]
     Active Substance: PACLITAXEL
     Dosage: 100 MG
  13. NEUROWELL PLUS [Concomitant]
     Dosage: UNK

REACTIONS (43)
  - Pulmonary oedema [Fatal]
  - Angina pectoris [Unknown]
  - Gallbladder rupture [Unknown]
  - Feeding disorder [Recovering/Resolving]
  - Dyspnoea at rest [Unknown]
  - Oxygen saturation decreased [Unknown]
  - Haemoglobin decreased [Not Recovered/Not Resolved]
  - Constipation [Not Recovered/Not Resolved]
  - Dizziness [Recovering/Resolving]
  - Joint swelling [Not Recovered/Not Resolved]
  - Arthralgia [Not Recovered/Not Resolved]
  - Swelling [Not Recovered/Not Resolved]
  - Neck pain [Not Recovered/Not Resolved]
  - Lymphadenopathy [Unknown]
  - Dyspepsia [Not Recovered/Not Resolved]
  - Blood creatinine increased [Not Recovered/Not Resolved]
  - Swelling face [Not Recovered/Not Resolved]
  - Peripheral swelling [Not Recovered/Not Resolved]
  - Nausea [Recovering/Resolving]
  - Hypertension [Unknown]
  - Pain [Not Recovered/Not Resolved]
  - Neoplasm progression [Unknown]
  - Restlessness [Unknown]
  - Vomiting [Recovering/Resolving]
  - Diarrhoea [Recovering/Resolving]
  - Mouth ulceration [Not Recovered/Not Resolved]
  - Asthenia [Not Recovered/Not Resolved]
  - Mutism [Unknown]
  - Pain in extremity [Unknown]
  - Burning sensation [Unknown]
  - Sleep disorder [Unknown]
  - White blood cell count decreased [Recovered/Resolved]
  - Platelet count decreased [Recovered/Resolved]
  - Chapped lips [Unknown]
  - Paraesthesia [Recovering/Resolving]
  - Urethral pain [Unknown]
  - Mass [Recovered/Resolved]
  - Lymphoedema [Unknown]
  - Headache [Unknown]
  - Fatigue [Unknown]
  - Anxiety [Unknown]
  - Fear [Unknown]
  - Off label use [Unknown]

NARRATIVE: CASE EVENT DATE: 20230101
